FAERS Safety Report 8604960-4 (Version None)
Quarter: 2012Q3

REPORT INFORMATION
  Report Type: 
  Country: None (occurrence: None)
  Receive Date: 20120820
  Receipt Date: 20120814
  Transmission Date: 20120928
  Serious: Yes (Other)
  Sender: FDA-Public Use
  Company Number: US-PFIZER INC-2012199293

PATIENT
  Age: 58 Year
  Sex: Male
  Weight: 95.2 kg

DRUGS (7)
  1. ATENOLOL [Concomitant]
     Dosage: 25 MG, 2X/DAY
  2. ACCUPRIL [Suspect]
     Dosage: 5 MG, 1X/DAY
     Route: 048
  3. NEURONTIN [Suspect]
     Indication: NERVE INJURY
     Dosage: 100 MG, 4X/DAY
     Route: 048
     Dates: start: 20020101
  4. HYDROCODONE [Concomitant]
     Dosage: 10 MG, 4X/DAY
  5. CELEBREX [Suspect]
     Indication: PROPHYLAXIS
     Dosage: 200 MG, 1X/DAY
     Route: 048
  6. NEURONTIN [Suspect]
     Dosage: 800 MG, 4X/DAY
     Route: 048
  7. LIPITOR [Suspect]
     Indication: BLOOD CHOLESTEROL INCREASED
     Dosage: 80 MG, 1X/DAY
     Route: 048

REACTIONS (6)
  - SENSORY LOSS [None]
  - HYPOAESTHESIA [None]
  - BURNING SENSATION [None]
  - BLOOD CHOLESTEROL INCREASED [None]
  - PAIN [None]
  - NEUROPATHY PERIPHERAL [None]
